FAERS Safety Report 14869302 (Version 1)
Quarter: 2018Q2

REPORT INFORMATION
  Report Type: Spontaneous
  Country: US (occurrence: US)
  Receive Date: 20180509
  Receipt Date: 20180509
  Transmission Date: 20180711
  Serious: No
  Sender: FDA-Public Use
  Company Number: US-TORRENT-00003496

PATIENT
  Age: 70 Year
  Sex: Female

DRUGS (1)
  1. CITALOPRAM [Suspect]
     Active Substance: CITALOPRAM HYDROBROMIDE
     Indication: HOT FLUSH
     Dates: start: 20170708

REACTIONS (5)
  - Off label use [Unknown]
  - Pruritus generalised [Not Recovered/Not Resolved]
  - Acne [Not Recovered/Not Resolved]
  - Reaction to excipient [Unknown]
  - Product substitution issue [Unknown]

NARRATIVE: CASE EVENT DATE: 20170708
